FAERS Safety Report 15772708 (Version 1)
Quarter: 2018Q4

REPORT INFORMATION
  Report Type: Spontaneous
  Country: GB (occurrence: RO)
  Receive Date: 20181228
  Receipt Date: 20181228
  Transmission Date: 20190205
  Serious: Yes (Other)
  Sender: FDA-Public Use
  Company Number: RO-FRESENIUS KABI-FK201813085

PATIENT
  Age: 72 Year
  Sex: Female

DRUGS (6)
  1. OXALIPLATIN (MANUFACTURER UNKNOWN) [Suspect]
     Active Substance: OXALIPLATIN
     Indication: RECTAL CANCER
     Route: 065
     Dates: start: 201502, end: 201602
  2. FOLINIC ACID [Concomitant]
     Active Substance: LEUCOVORIN
     Indication: RECTAL CANCER
     Route: 065
     Dates: start: 201611, end: 201709
  3. SIMVASTATIN. [Suspect]
     Active Substance: SIMVASTATIN
     Indication: RECTAL CANCER
     Route: 065
     Dates: start: 201701, end: 201709
  4. CAPECITABINE. [Suspect]
     Active Substance: CAPECITABINE
     Indication: RECTAL CANCER
     Route: 065
     Dates: start: 201502, end: 201602
  5. IRINOTECAN [Concomitant]
     Active Substance: IRINOTECAN
     Indication: PRODUCT USED FOR UNKNOWN INDICATION
     Route: 065
     Dates: start: 201611, end: 201709
  6. FLUOROURACIL. [Concomitant]
     Active Substance: FLUOROURACIL
     Indication: PRODUCT USED FOR UNKNOWN INDICATION
     Route: 065
     Dates: start: 201611, end: 201709

REACTIONS (2)
  - Neuropathy peripheral [Unknown]
  - Granulomatous lymphadenitis [Unknown]

NARRATIVE: CASE EVENT DATE: 20171101
